FAERS Safety Report 8010063-2 (Version None)
Quarter: 2011Q4

REPORT INFORMATION
  Report Type: 
  Country: None (occurrence: None)
  Receive Date: 20111228
  Receipt Date: 20111227
  Transmission Date: 20120403
  Serious: Yes (Life-Threatening, Hospitalization)
  Sender: FDA-Public Use
  Company Number: US-BRISTOL-MYERS SQUIBB COMPANY-16236119

PATIENT
  Age: 77 Year
  Sex: Female

DRUGS (7)
  1. COUMADIN [Concomitant]
  2. HYDROCHLOROTHIAZIDE [Concomitant]
  3. SOTALOL HCL [Concomitant]
  4. ARIMIDEX [Concomitant]
  5. CALCIUM CARBONATE [Concomitant]
  6. SPRYCEL [Suspect]
     Indication: CHRONIC MYELOID LEUKAEMIA
     Route: 048
     Dates: start: 20080312, end: 20111123
  7. CITALOPRAM HYDROBROMIDE [Concomitant]

REACTIONS (1)
  - PLEURAL EFFUSION [None]
